FAERS Safety Report 9170234 (Version 1)
Quarter: 2013Q1

REPORT INFORMATION
  Report Type: Spontaneous
  Country: BR (occurrence: BR)
  Receive Date: 20130319
  Receipt Date: 20130319
  Transmission Date: 20140127
  Serious: Yes (Death, Hospitalization)
  Sender: FDA-Public Use
  Company Number: PHHY2013BR026427

PATIENT
  Sex: Male
  Weight: 50 kg

DRUGS (6)
  1. EXELON PATCH [Suspect]
     Indication: MEMORY IMPAIRMENT
     Dosage: 4.6 MG, DAILY
     Route: 062
     Dates: start: 201212
  2. DIGOXIN [Concomitant]
  3. LASIX [Concomitant]
  4. CAPTOPRIL [Concomitant]
  5. MAREVAN [Concomitant]
  6. LEXAPRO [Concomitant]

REACTIONS (3)
  - Gastrointestinal neoplasm [Fatal]
  - Constipation [Fatal]
  - Abdominal pain [Fatal]
